FAERS Safety Report 7405817-7 (Version None)
Quarter: 2011Q2

REPORT INFORMATION
  Report Type: 
  Country: None (occurrence: None)
  Receive Date: 20110411
  Receipt Date: 20110328
  Transmission Date: 20111010
  Serious: Yes (Hospitalization, Other)
  Sender: FDA-Public Use
  Company Number: US-ACTELION-A-NJ2011-46007

PATIENT

DRUGS (3)
  1. TRACLEER [Suspect]
     Indication: PULMONARY ARTERIAL HYPERTENSION
     Dosage: UNK
     Route: 048
     Dates: start: 20021104
  2. REVATIO [Concomitant]
  3. COUMADIN [Concomitant]

REACTIONS (4)
  - PALPITATIONS [None]
  - AORTIC STENOSIS [None]
  - SYNCOPE [None]
  - CHEST PAIN [None]
